FAERS Safety Report 22100770 (Version 1)
Quarter: 2023Q1

REPORT INFORMATION
  Report Type: Other
  Country: CZ (occurrence: CZ)
  Receive Date: 20230316
  Receipt Date: 20230316
  Transmission Date: 20230417
  Serious: Yes (Death, Hospitalization, Other)
  Sender: FDA-Public Use
  Company Number: CZ-Bion-011321

PATIENT
  Age: 50 Year
  Sex: Female

DRUGS (1)
  1. CALCITRIOL [Suspect]
     Active Substance: CALCITRIOL
     Indication: Hyperparathyroidism secondary

REACTIONS (1)
  - Calciphylaxis [Fatal]
